FAERS Safety Report 12417968 (Version 1)
Quarter: 2016Q2

REPORT INFORMATION
  Report Type: Spontaneous
  Country: GB (occurrence: GB)
  Receive Date: 20160531
  Receipt Date: 20160531
  Transmission Date: 20160815
  Serious: Yes (Other)
  Sender: FDA-Public Use
  Company Number: GB-AUROBINDO-AUR-APL-2016-06266

PATIENT
  Age: 25 Year
  Sex: Female
  Weight: 93.43 kg

DRUGS (1)
  1. IBUPROFEN 200MG [Suspect]
     Active Substance: IBUPROFEN
     Indication: GINGIVAL PAIN
     Dosage: 200 MG, UNK
     Route: 048
     Dates: start: 20160506

REACTIONS (3)
  - Dyspnoea [Recovering/Resolving]
  - Asthma [Recovering/Resolving]
  - Nasopharyngitis [Recovering/Resolving]

NARRATIVE: CASE EVENT DATE: 20160506
